FAERS Safety Report 7487114-7 (Version None)
Quarter: 2011Q2

REPORT INFORMATION
  Report Type: 
  Country: None (occurrence: None)
  Receive Date: 20110518
  Receipt Date: 20110506
  Transmission Date: 20111010
  Serious: Yes (Other)
  Sender: FDA-Public Use
  Company Number: GB-RANBAXY-2011R1-44257

PATIENT
  Age: 74 Year
  Sex: Female

DRUGS (4)
  1. ESCITALOPRAM [Concomitant]
     Indication: PRODUCT USED FOR UNKNOWN INDICATION
     Dosage: 10 MG, UNK
     Route: 048
  2. CLARITHROMYCIN [Suspect]
     Indication: PNEUMONIA
     Dosage: 500 MG, BID
     Route: 048
     Dates: start: 20110118, end: 20110121
  3. AMOXICILLIN [Concomitant]
     Indication: PNEUMONIA
     Dosage: 500 MG, TID
     Route: 048
     Dates: start: 20110118, end: 20110124
  4. NICOTINE [Concomitant]
     Indication: PRODUCT USED FOR UNKNOWN INDICATION
     Dosage: 21 UG, UNK
     Route: 062
     Dates: start: 20110118

REACTIONS (4)
  - MALAISE [None]
  - ULCER [None]
  - RASH [None]
  - STEVENS-JOHNSON SYNDROME [None]
